FAERS Safety Report 7177179-4 (Version None)
Quarter: 2010Q4

REPORT INFORMATION
  Report Type: 
  Country: None (occurrence: None)
  Receive Date: 20101220
  Receipt Date: 20101208
  Transmission Date: 20110411
  Serious: Yes (Other)
  Sender: FDA-Public Use
  Company Number: US-SANOFI-AVENTIS-2010SA074832

PATIENT
  Age: 72 Year
  Sex: Female

DRUGS (9)
  1. MULTAQ [Suspect]
     Indication: ATRIAL FIBRILLATION
     Route: 048
     Dates: start: 20100901
  2. MULTAQ [Suspect]
     Route: 048
     Dates: start: 20101201
  3. BENICAR [Concomitant]
  4. SYNTHROID [Concomitant]
  5. LEXAPRO [Concomitant]
  6. VITAMIN D [Concomitant]
  7. WARFARIN SODIUM [Concomitant]
  8. FOLIC ACID [Concomitant]
  9. VITAMIN B COMPLEX [Concomitant]

REACTIONS (4)
  - ATRIAL FIBRILLATION [None]
  - HEART RATE IRREGULAR [None]
  - RASH [None]
  - UNDERDOSE [None]
